FAERS Safety Report 14918858 (Version 16)
Quarter: 2020Q4

REPORT INFORMATION
  Report Type: Spontaneous
  Country: CA (occurrence: CA)
  Receive Date: 20180521
  Receipt Date: 20201128
  Transmission Date: 20210113
  Serious: Yes (Other)
  Sender: FDA-Public Use
  Company Number: CA-CELLTRION INC.-2017CA011198

PATIENT

DRUGS (29)
  1. INFLECTRA [Suspect]
     Active Substance: INFLIXIMAB-DYYB
     Dosage: 5 MG/KG, (EVERY 6 WEEKS)
     Route: 042
     Dates: start: 20190115
  2. INFLECTRA [Suspect]
     Active Substance: INFLIXIMAB-DYYB
     Dosage: 5 MG/KG, (EVERY 6 WEEKS)
     Route: 042
     Dates: start: 20191218
  3. INFLECTRA [Suspect]
     Active Substance: INFLIXIMAB-DYYB
     Dosage: 5 MG/KG, (EVERY 6 WEEKS)
     Route: 042
     Dates: start: 20190115
  4. INFLECTRA [Suspect]
     Active Substance: INFLIXIMAB-DYYB
     Dosage: 5 MG/KG EVERY 6 WEEKS
     Route: 042
     Dates: start: 20200714
  5. INFLECTRA [Suspect]
     Active Substance: INFLIXIMAB-DYYB
     Dosage: 5 MG/KG, (EVERY 6 WEEKS)
     Route: 042
     Dates: start: 20180508
  6. INFLECTRA [Suspect]
     Active Substance: INFLIXIMAB-DYYB
     Dosage: 5 MG/KG,  (EVERY 6 WEEKS)
     Route: 042
     Dates: start: 20190924
  7. PREDNISONE. [Concomitant]
     Active Substance: PREDNISONE
     Dosage: 5 MG, UNK (FOR 7 DAYS)
     Route: 065
  8. RISEDRONATE [Concomitant]
     Active Substance: RISEDRONATE SODIUM
     Dosage: UNK
     Route: 065
  9. INFLECTRA [Suspect]
     Active Substance: INFLIXIMAB-DYYB
     Dosage: 5 MG/KG, (EVERY 6 WEEKS)
     Route: 042
     Dates: start: 20180103
  10. INFLECTRA [Suspect]
     Active Substance: INFLIXIMAB-DYYB
     Dosage: 5 MG/KG, (EVERY 6 WEEKS)
     Route: 042
     Dates: start: 20180214
  11. INFLECTRA [Suspect]
     Active Substance: INFLIXIMAB-DYYB
     Dosage: 5 MG/KG, (EVERY 6 WEEKS)
     Route: 042
     Dates: start: 20180911
  12. INFLECTRA [Suspect]
     Active Substance: INFLIXIMAB-DYYB
     Dosage: 5 MG/KG EVERY 6 WEEKS
     Route: 042
     Dates: start: 20201008
  13. INFLECTRA [Suspect]
     Active Substance: INFLIXIMAB-DYYB
     Indication: CROHN^S DISEASE
     Dosage: 5 MG/KG, (EVERY 2, 6 WEEKS, THEN EVERY 8 WEEKS)
     Route: 042
     Dates: start: 20170628, end: 20171005
  14. INFLECTRA [Suspect]
     Active Substance: INFLIXIMAB-DYYB
     Dosage: 5 MG/KG, EVERY 6 WEEKS
     Route: 042
  15. INFLECTRA [Suspect]
     Active Substance: INFLIXIMAB-DYYB
     Dosage: 5 MG/KG, (EVERY 6 WEEKS)
     Route: 042
     Dates: start: 20181023
  16. VIT D [Concomitant]
     Active Substance: VITAMIN D NOS
     Dosage: UNK
     Route: 065
  17. INFLECTRA [Suspect]
     Active Substance: INFLIXIMAB-DYYB
     Dosage: 5 MG/KG, (EVERY 6 WEEKS)
     Route: 042
     Dates: start: 20200128
  18. INFLECTRA [Suspect]
     Active Substance: INFLIXIMAB-DYYB
     Dosage: 5 MG/KG EVERY 6 WEEKS
     Route: 042
     Dates: start: 20200602
  19. INFLECTRA [Suspect]
     Active Substance: INFLIXIMAB-DYYB
     Dosage: 5 MG/KG EVERY 6 WEEKS
     Route: 042
     Dates: start: 20201119
  20. PREDNISONE. [Concomitant]
     Active Substance: PREDNISONE
     Dosage: UNK (MAXIMUM DOSE)
     Dates: start: 201706, end: 201707
  21. PREDNISONE. [Concomitant]
     Active Substance: PREDNISONE
     Dosage: 5MG FOR 7DAYS
  22. CALCIUM [Concomitant]
     Active Substance: CALCIUM
     Dosage: UNK
     Route: 065
  23. INFLECTRA [Suspect]
     Active Substance: INFLIXIMAB-DYYB
     Dosage: 5 MG/KG,  (EVERY 6 WEEKS)
     Route: 042
     Dates: start: 20190115
  24. INFLECTRA [Suspect]
     Active Substance: INFLIXIMAB-DYYB
     Dosage: 5 MG/KG,  (EVERY 6 WEEKS)
     Route: 042
     Dates: start: 20190813
  25. INFLECTRA [Suspect]
     Active Substance: INFLIXIMAB-DYYB
     Dosage: 295 MG, UNK
     Route: 042
     Dates: start: 20191105
  26. INFLECTRA [Suspect]
     Active Substance: INFLIXIMAB-DYYB
     Dosage: 5 MG/KG,  (EVERY 6 WEEKS)
     Route: 042
     Dates: start: 20171116
  27. INFLECTRA [Suspect]
     Active Substance: INFLIXIMAB-DYYB
     Dosage: 5 MG/KG, (EVERY 6 WEEKS)
     Route: 042
     Dates: start: 20180619
  28. INFLECTRA [Suspect]
     Active Substance: INFLIXIMAB-DYYB
     Dosage: 5 MG/KG, (EVERY 6 WEEKS)
     Route: 042
     Dates: start: 20180731
  29. INFLECTRA [Suspect]
     Active Substance: INFLIXIMAB-DYYB
     Dosage: 5 MG/KG EVERY 6 WEEKS
     Route: 042
     Dates: start: 20200310

REACTIONS (19)
  - Condition aggravated [Recovering/Resolving]
  - Decreased appetite [Unknown]
  - Off label use [Unknown]
  - Heart rate irregular [Unknown]
  - Weight decreased [Unknown]
  - Rhinorrhoea [Not Recovered/Not Resolved]
  - Dyspnoea [Recovering/Resolving]
  - Oropharyngeal pain [Recovering/Resolving]
  - Incorrect dose administered [Unknown]
  - Fatigue [Not Recovered/Not Resolved]
  - Pneumonia [Recovered/Resolved]
  - Body temperature decreased [Unknown]
  - Infusion site pain [Unknown]
  - Product use issue [Unknown]
  - Intentional product use issue [Unknown]
  - Cough [Recovering/Resolving]
  - Blood pressure increased [Unknown]
  - Heart rate increased [Unknown]
  - Influenza [Recovering/Resolving]

NARRATIVE: CASE EVENT DATE: 20170810
